FAERS Safety Report 24109499 (Version 1)
Quarter: 2024Q3

REPORT INFORMATION
  Report Type: Spontaneous
  Country: JP (occurrence: JP)
  Receive Date: 20240718
  Receipt Date: 20240718
  Transmission Date: 20241016
  Serious: Yes (Hospitalization)
  Sender: BOEHRINGER INGELHEIM
  Company Number: JP-NBI-2024-BI-040456

PATIENT
  Age: 52 Year
  Sex: Male

DRUGS (3)
  1. JARDIANCE [Suspect]
     Active Substance: EMPAGLIFLOZIN
     Indication: Type 2 diabetes mellitus
     Dosage: DAILY DOSE: 10 MILLIGRAM(S)
     Route: 065
  2. INSULIN GLARGINE [Concomitant]
     Active Substance: INSULIN GLARGINE
     Indication: Type 2 diabetes mellitus
  3. SEMAGLUTIDE(GENETICAL RECOMBINATION) [Concomitant]
     Indication: Type 2 diabetes mellitus

REACTIONS (6)
  - Subcutaneous abscess [Unknown]
  - Diabetic ketoacidosis [Recovered/Resolved]
  - Staphylococcal sepsis [Unknown]
  - Nephrotic syndrome [Unknown]
  - Generalised oedema [Unknown]
  - Hypoalbuminaemia [Unknown]
